FAERS Safety Report 5567777-3 (Version None)
Quarter: 2007Q4

REPORT INFORMATION
  Report Type: 
  Country: None (occurrence: None)
  Receive Date: 20071218
  Receipt Date: 20071210
  Transmission Date: 20080405
  Serious: Yes (Hospitalization)
  Sender: FDA-Public Use
  Company Number: 2007BI021484

PATIENT
  Age: 55 Year
  Sex: Female

DRUGS (3)
  1. NATALIZUMAB [Suspect]
     Indication: MULTIPLE SCLEROSIS
     Dosage: 300 MG;QM;IV
     Route: 042
     Dates: start: 20070802
  2. AVONEX [Concomitant]
  3. BETASERON [Concomitant]

REACTIONS (8)
  - HYPERPLASIA [None]
  - IMPAIRED HEALING [None]
  - INJECTION SITE NECROSIS [None]
  - OPEN WOUND [None]
  - SKIN DISORDER [None]
  - SKIN HYPERTROPHY [None]
  - SKIN LESION [None]
  - SKIN NECROSIS [None]
